FAERS Safety Report 16383934 (Version 1)
Quarter: 2019Q2

REPORT INFORMATION
  Report Type: Spontaneous
  Country: PL (occurrence: PL)
  Receive Date: 20190603
  Receipt Date: 20190603
  Transmission Date: 20190711
  Serious: Yes (Other)
  Sender: FDA-Public Use
  Company Number: PL-TEVA-2019-PL-1057053

PATIENT
  Age: 38 Year
  Sex: Male
  Weight: 96 kg

DRUGS (4)
  1. ACIDUM FOLICUM [Concomitant]
     Active Substance: FOLIC ACID
  2. METHOTREXAT [Suspect]
     Active Substance: METHOTREXATE
     Indication: ARTHRITIS
     Dosage: 15MG
     Route: 048
     Dates: end: 20160919
  3. BI-PROFENID [Concomitant]
     Active Substance: KETOPROFEN
  4. ESSENTIALE FORTE [Concomitant]

REACTIONS (2)
  - Aspartate aminotransferase increased [Recovering/Resolving]
  - Alanine aminotransferase increased [Recovering/Resolving]

NARRATIVE: CASE EVENT DATE: 20160905
